FAERS Safety Report 21532928 (Version 1)
Quarter: 2022Q4

REPORT INFORMATION
  Report Type: Spontaneous
  Country: IT (occurrence: IT)
  Receive Date: 20221101
  Receipt Date: 20221101
  Transmission Date: 20230113
  Serious: Yes (Hospitalization, Other)
  Sender: FDA-Public Use
  Company Number: IT-MLMSERVICE-20221017-3862125-2

PATIENT
  Age: 30 Year
  Sex: Male

DRUGS (6)
  1. CLOZAPINE [Suspect]
     Active Substance: CLOZAPINE
     Indication: Drug use disorder
     Dosage: 125 MILLIGRAM, ONCE A DAY
     Route: 065
  2. CLOZAPINE [Suspect]
     Active Substance: CLOZAPINE
     Dosage: 50 MILLIGRAM, ONCE A DAY
     Route: 065
  3. CLOTHIAPINE [Suspect]
     Active Substance: CLOTHIAPINE
     Indication: Drug use disorder
     Dosage: 90 MILLIGRAM, ONCE A DAY
     Route: 065
  4. SUBOXONE [Suspect]
     Active Substance: BUPRENORPHINE HYDROCHLORIDE\NALOXONE HYDROCHLORIDE
     Indication: Product used for unknown indication
     Dosage: UNK
     Route: 060
  5. CLONAZEPAM [Concomitant]
     Active Substance: CLONAZEPAM
     Indication: Drug use disorder
     Dosage: 4 MILLIGRAM, ONCE A DAY
     Route: 065
     Dates: start: 20220522
  6. VALPROATE SODIUM [Concomitant]
     Active Substance: VALPROATE SODIUM
     Indication: Drug use disorder
     Dosage: 1500 MILLIGRAM, ONCE A DAY
     Route: 065

REACTIONS (1)
  - Priapism [Recovered/Resolved]
